FAERS Safety Report 16481748 (Version 2)
Quarter: 2019Q3

REPORT INFORMATION
  Report Type: Spontaneous
  Country: SK (occurrence: SK)
  Receive Date: 20190627
  Receipt Date: 20190708
  Transmission Date: 20191004
  Serious: Yes (Hospitalization, Other)
  Sender: FDA-Public Use
  Company Number: SK-ROCHE-2343931

PATIENT
  Age: 16 Year
  Sex: Female

DRUGS (1)
  1. RITUXIMAB. [Suspect]
     Active Substance: RITUXIMAB
     Indication: BURKITT^S LYMPHOMA
     Route: 065

REACTIONS (11)
  - Gastrointestinal inflammation [Unknown]
  - Septic shock [Unknown]
  - Wound dehiscence [Unknown]
  - Dermatitis [Unknown]
  - Intentional product use issue [Unknown]
  - Skin toxicity [Unknown]
  - Acute kidney injury [Unknown]
  - Pleural effusion [Unknown]
  - Mucosal haemorrhage [Unknown]
  - Decubitus ulcer [Unknown]
  - Off label use [Unknown]
